FAERS Safety Report 21530122 (Version 1)
Quarter: 2022Q4

REPORT INFORMATION
  Report Type: Spontaneous
  Country: RS (occurrence: RS)
  Receive Date: 20221031
  Receipt Date: 20221031
  Transmission Date: 20230113
  Serious: Yes (Other)
  Sender: FDA-Public Use
  Company Number: RS-TEVA-2022-RS-2818527

PATIENT
  Age: 32 Year
  Sex: Female

DRUGS (1)
  1. OCTREOTIDE ACETATE [Suspect]
     Active Substance: OCTREOTIDE ACETATE
     Indication: Product used for unknown indication
     Dates: start: 202207

REACTIONS (7)
  - Injection site abscess [Recovered/Resolved]
  - Tonsillar hypertrophy [Recovered/Resolved]
  - Pharyngitis bacterial [Recovered/Resolved]
  - Oropharyngeal pain [Recovered/Resolved]
  - Injection site swelling [Unknown]
  - Injection site pain [Unknown]
  - Injection site erythema [Unknown]

NARRATIVE: CASE EVENT DATE: 20220701
